FAERS Safety Report 19411219 (Version 8)
Quarter: 2022Q1

REPORT INFORMATION
  Report Type: Report from Study
  Country: US (occurrence: US)
  Receive Date: 20210614
  Receipt Date: 20220301
  Transmission Date: 20220424
  Serious: No
  Sender: FDA-Public Use
  Company Number: NVSC2021US133526

PATIENT
  Age: 52 Year
  Sex: Female

DRUGS (3)
  1. KESIMPTA [Suspect]
     Active Substance: OFATUMUMAB
     Indication: Relapsing-remitting multiple sclerosis
     Dosage: 20 MG, QMO
     Route: 058
     Dates: start: 20210603
  2. KESIMPTA [Suspect]
     Active Substance: OFATUMUMAB
     Indication: Clinically isolated syndrome
     Dosage: UNK
     Route: 065
     Dates: start: 20211108
  3. KESIMPTA [Suspect]
     Active Substance: OFATUMUMAB
     Dosage: 20 MG, QW
     Route: 030

REACTIONS (8)
  - Balance disorder [Recovered/Resolved]
  - Device malfunction [Unknown]
  - Accidental exposure to product [Unknown]
  - Polymenorrhoea [Unknown]
  - Heavy menstrual bleeding [Recovered/Resolved]
  - Rotator cuff syndrome [Recovering/Resolving]
  - Influenza [Recovered/Resolved]
  - Chills [Recovered/Resolved]

NARRATIVE: CASE EVENT DATE: 20210603
